FAERS Safety Report 26107148 (Version 2)
Quarter: 2025Q4

REPORT INFORMATION
  Report Type: Report from Study
  Country: US (occurrence: US)
  Receive Date: 20251201
  Receipt Date: 20251212
  Transmission Date: 20260117
  Serious: Yes (Other)
  Sender: TEVA
  Company Number: US-TEVA-VS-3398197

PATIENT
  Age: 28 Year
  Sex: Female

DRUGS (1)
  1. CLARAVIS [Suspect]
     Active Substance: ISOTRETINOIN
     Indication: Product used for unknown indication
     Route: 065
     Dates: start: 20250625, end: 20251022

REACTIONS (4)
  - Abortion spontaneous [Unknown]
  - Unintended pregnancy [Unknown]
  - Gastrointestinal infection [Unknown]
  - Malaise [Unknown]

NARRATIVE: CASE EVENT DATE: 20250101
